FAERS Safety Report 12130502 (Version 1)
Quarter: 2016Q1

REPORT INFORMATION
  Report Type: Spontaneous
  Country: US (occurrence: None)
  Receive Date: 20160229
  Receipt Date: 20160229
  Transmission Date: 20160526
  Serious: No
  Sender: FDA-Public Use
  Company Number: None

PATIENT
  Age: 77 Year
  Sex: Female

DRUGS (23)
  1. DIAZEPAM. [Concomitant]
     Active Substance: DIAZEPAM
  2. SYSTANE (HYPROMELLOSE 2910 (4000 MPA.S)) [Concomitant]
     Active Substance: HYPROMELLOSE 2910 (4000 MPA.S)
  3. PRAVASTATIN [Concomitant]
     Active Substance: PRAVASTATIN\PRAVASTATIN SODIUM
  4. FUROSEMIDE. [Concomitant]
     Active Substance: FUROSEMIDE
  5. BUMETANIDE. [Concomitant]
     Active Substance: BUMETANIDE
  6. OMEPRAZOLE. [Concomitant]
     Active Substance: OMEPRAZOLE
  7. SERTRALINE [Concomitant]
     Active Substance: SERTRALINE HYDROCHLORIDE
  8. POT CL MICRO [Concomitant]
  9. POT BICARBON [Concomitant]
  10. FLECANIDE [Concomitant]
     Active Substance: FLECAINIDE
  11. A-HYDROCORT [Concomitant]
     Active Substance: HYDROCORTISONE SODIUM SUCCINATE
  12. SPRYCEL [Concomitant]
     Active Substance: DASATINIB
  13. SPRYCEL [Suspect]
     Active Substance: DASATINIB
     Indication: CHRONIC MYELOID LEUKAEMIA
     Route: 048
     Dates: start: 20150603
  14. FLECAINIDE [Concomitant]
     Active Substance: FLECAINIDE
  15. POT CL MICRO TAB [Concomitant]
  16. LEVOTHYROXIN [Concomitant]
     Active Substance: LEVOTHYROXINE
  17. METOPROLOL. [Concomitant]
     Active Substance: METOPROLOL
  18. ALPRAZOLAM. [Concomitant]
     Active Substance: ALPRAZOLAM
  19. AMLODIPINE [Concomitant]
     Active Substance: AMLODIPINE BESYLATE
  20. DOXYCYC MONO [Concomitant]
  21. POT BICARBON TAB [Concomitant]
  22. LATANOPROST. [Concomitant]
     Active Substance: LATANOPROST
  23. VENTOLIN [Concomitant]
     Active Substance: ALBUTEROL SULFATE

REACTIONS (1)
  - Pleural effusion [None]

NARRATIVE: CASE EVENT DATE: 20160121
